FAERS Safety Report 4980858-8 (Version None)
Quarter: 2006Q2

REPORT INFORMATION
  Report Type: 
  Country: None (occurrence: None)
  Receive Date: 20060418
  Receipt Date: 20060405
  Transmission Date: 20061013
  Serious: Yes (Other)
  Sender: FDA-Public Use
  Company Number: 2006047588

PATIENT
  Sex: Male
  Weight: 74.8435 kg

DRUGS (2)
  1. DILANTIN [Suspect]
     Indication: CONVULSION
     Dosage: 200 MG (100 MG, 2 IN 1 D), UNKNOWN
     Route: 065
     Dates: start: 19520101
  2. DILANTIN [Suspect]
     Indication: CONVULSION
     Dosage: UNK (25 MG, 1 TAB DAILY, ALT. WITH 2 TABS DAILY), ORAL
     Route: 048
     Dates: start: 19520101

REACTIONS (2)
  - CONVULSION [None]
  - GINGIVAL HYPERPLASIA [None]
